FAERS Safety Report 5786728-X (Version None)
Quarter: 2008Q2

REPORT INFORMATION
  Report Type: 
  Country: None (occurrence: None)
  Receive Date: 20080619
  Receipt Date: 20080610
  Transmission Date: 20081010
  Serious: Yes (Other)
  Sender: FDA-Public Use
  Company Number: DSA_62157_2008

PATIENT
  Age: 25 Year
  Sex: Female

DRUGS (1)
  1. MYSOLINE [Suspect]
     Indication: DRUG USE FOR UNKNOWN INDICATION
     Dosage: (DF)

REACTIONS (7)
  - BALANCE DISORDER [None]
  - FEELING ABNORMAL [None]
  - LETHARGY [None]
  - NAUSEA [None]
  - OVERDOSE [None]
  - TREMOR [None]
  - VERTIGO [None]
